FAERS Safety Report 22374885 (Version 1)
Quarter: 2023Q2

REPORT INFORMATION
  Report Type: Spontaneous
  Country: US (occurrence: None)
  Receive Date: 20230527
  Receipt Date: 20230527
  Transmission Date: 20230722
  Serious: Yes (Hospitalization, Other)
  Sender: FDA-Public Use
  Company Number: US-Unichem Pharmaceuticals (USA) Inc-UCM202305-000602

PATIENT
  Age: 32 Year
  Sex: Female

DRUGS (1)
  1. TOPIRAMATE [Suspect]
     Active Substance: TOPIRAMATE
     Indication: Product used for unknown indication

REACTIONS (5)
  - Encephalopathy [Recovering/Resolving]
  - Myoclonus [Recovered/Resolved]
  - Depressed level of consciousness [Recovered/Resolved]
  - Acidosis hyperchloraemic [Recovering/Resolving]
  - Intentional overdose [Unknown]
